FAERS Safety Report 10839660 (Version 2)
Quarter: 2016Q1

REPORT INFORMATION
  Report Type: Report from Study
  Country: US (occurrence: US)
  Receive Date: 20150220
  Receipt Date: 20160125
  Transmission Date: 20160525
  Serious: Yes (Other)
  Sender: FDA-Public Use
  Company Number: US-ABBVIE-14P-163-1248530-00

PATIENT
  Sex: Female

DRUGS (5)
  1. HUMIRA [Suspect]
     Active Substance: ADALIMUMAB
     Indication: PSORIASIS
  2. XANAX [Concomitant]
     Active Substance: ALPRAZOLAM
     Indication: ANXIETY
  3. HUMIRA [Suspect]
     Active Substance: ADALIMUMAB
     Indication: PSORIATIC ARTHROPATHY
     Route: 065
  4. HUMIRA [Suspect]
     Active Substance: ADALIMUMAB
     Indication: PSORIASIS
     Route: 065
     Dates: end: 20140412
  5. CIMZIA [Suspect]
     Active Substance: CERTOLIZUMAB PEGOL
     Indication: PRODUCT USED FOR UNKNOWN INDICATION
     Route: 065
     Dates: start: 20140501

REACTIONS (17)
  - Psoriatic arthropathy [Not Recovered/Not Resolved]
  - Sensory disturbance [Unknown]
  - Flushing [Unknown]
  - Skin disorder [Unknown]
  - Bunion operation [Recovered/Resolved]
  - Hysterectomy [Unknown]
  - Attention deficit/hyperactivity disorder [Unknown]
  - Musculoskeletal pain [Unknown]
  - Nail pitting [Recovering/Resolving]
  - Emotional disorder [Unknown]
  - Drug ineffective [Not Recovered/Not Resolved]
  - Nail psoriasis [Unknown]
  - Pain [Unknown]
  - Blood pressure increased [Unknown]
  - Onychoclasis [Not Recovered/Not Resolved]
  - Nail hypertrophy [Unknown]
  - Nail hypertrophy [Not Recovered/Not Resolved]

NARRATIVE: CASE EVENT DATE: 2013
